FAERS Safety Report 9838287 (Version 1)
Quarter: 2013Q4

REPORT INFORMATION
  Report Type: Spontaneous
  Country: US (occurrence: None)
  Receive Date: 20131205
  Receipt Date: 20131205
  Transmission Date: 20140711
  Serious: Yes (Other)
  Sender: FDA-Public Use
  Company Number: 163-POMAL-13081840

PATIENT
  Age: 58 Year
  Sex: Female
  Weight: 52.16 kg

DRUGS (7)
  1. POMALYST [Suspect]
     Indication: PLASMA CELL MYELOMA
     Dosage: 4 MG, 14 IN 14 D, PO
     Route: 048
     Dates: start: 20130418
  2. PANTOPRAZOLE SODIUM (PANTOPRAZOLE SODIUM) [Concomitant]
  3. DEXAMETHASONE (DEXAMETHASONE) [Concomitant]
  4. ACYCLOVIR [Suspect]
  5. OXYCODONE HCL (OXYCODONE HYDROCHLORIDE) [Concomitant]
  6. MAGNESIUM (MAGNESIUM) [Concomitant]
  7. FOLBEE (TRIOBE) [Concomitant]

REACTIONS (1)
  - Platelet count decreased [None]
